FAERS Safety Report 4329636-3 (Version None)
Quarter: 2004Q2

REPORT INFORMATION
  Report Type: 
  Country: None (occurrence: None)
  Receive Date: 20040401
  Receipt Date: 20040319
  Transmission Date: 20050107
  Serious: Yes (Other)
  Sender: FDA-Public Use
  Company Number: PHEH2004US03242

PATIENT
  Age: 83 Year
  Sex: Female

DRUGS (2)
  1. EXELON [Suspect]
     Indication: DEMENTIA ALZHEIMER'S TYPE
     Route: 048
     Dates: start: 20040126
  2. MEMANTINE HCL [Suspect]
     Dosage: 5 MG, QD
     Route: 048
     Dates: start: 20040126

REACTIONS (1)
  - PEMPHIGOID [None]
